FAERS Safety Report 9055125 (Version 2)
Quarter: 2014Q3

REPORT INFORMATION
  Report Type: Spontaneous
  Country: US (occurrence: US)
  Receive Date: 20130206
  Receipt Date: 20140917
  Transmission Date: 20150326
  Serious: No
  Sender: FDA-Public Use
  Company Number: US-009507513-1301USA013306

PATIENT
  Age: 72 Year
  Sex: Female

DRUGS (3)
  1. DULERA [Suspect]
     Active Substance: FORMOTEROL FUMARATE DIHYDRATE\MOMETASONE FUROATE
     Indication: ASTHMA
     Dosage: 200MCG/5MCG / 2 PUFFS, TWICE DAILY, ORAL INHALATION
     Route: 055
     Dates: start: 201209
  2. DULERA [Suspect]
     Active Substance: FORMOTEROL FUMARATE DIHYDRATE\MOMETASONE FUROATE
     Indication: CHRONIC OBSTRUCTIVE PULMONARY DISEASE
     Dosage: 200MCG/5MCG / 2 PUFFS, TWICE DAILY, ORAL INHALATION
     Route: 055
  3. COMBIVENT [Concomitant]
     Active Substance: ALBUTEROL SULFATE\IPRATROPIUM BROMIDE

REACTIONS (4)
  - Dyspnoea [Recovering/Resolving]
  - Blood potassium decreased [Not Recovered/Not Resolved]
  - Underdose [Unknown]
  - Device difficult to use [Unknown]

NARRATIVE: CASE EVENT DATE: 201209
